FAERS Safety Report 25687880 (Version 3)
Quarter: 2025Q4

REPORT INFORMATION
  Report Type: Report from Study
  Country: EU (occurrence: EU)
  Receive Date: 20250817
  Receipt Date: 20251129
  Transmission Date: 20260117
  Serious: Yes (Other)
  Sender: ABBVIE
  Company Number: EU-ABBVIE-6414172

PATIENT
  Age: 72 Year
  Sex: Male

DRUGS (6)
  1. FOSCARBIDOPA\FOSLEVODOPA [Suspect]
     Active Substance: FOSCARBIDOPA\FOSLEVODOPA
     Indication: Parkinson^s disease
     Dosage: EXTRA DOSE: BOLUS 1.5 ML, CONTINUOUS DOSE OVER 24 HOURS 0.41 ML/H
     Route: 058
     Dates: start: 20240910
  2. FOSCARBIDOPA\FOSLEVODOPA [Suspect]
     Active Substance: FOSCARBIDOPA\FOSLEVODOPA
     Dosage: CR: 0.41 ML/H, CRH: 0.41 ML/H, CRN: 0.41 ML/H, ED: 0.15 ML AND BLOCKING TIME OF 1 HOUR
     Route: 058
  3. BENSERAZIDE HYDROCHLORIDE\LEVODOPA [Concomitant]
     Active Substance: BENSERAZIDE HYDROCHLORIDE\LEVODOPA
     Indication: Product used for unknown indication
     Dosage: 100/25MG PER DAY
  4. ONGENTYS [Concomitant]
     Active Substance: OPICAPONE
     Indication: Product used for unknown indication
  5. VITAMIN B6 [Concomitant]
     Active Substance: PYRIDOXINE HYDROCHLORIDE
     Indication: Product used for unknown indication
  6. PANTOZOL [Concomitant]
     Active Substance: PANTOPRAZOLE SODIUM
     Indication: Product used for unknown indication

REACTIONS (4)
  - Hip arthroplasty [Not Recovered/Not Resolved]
  - Therapeutic product effect variable [Unknown]
  - Movement disorder [Unknown]
  - Hallucination [Recovered/Resolved]
